FAERS Safety Report 8130250-2 (Version None)
Quarter: 2012Q1

REPORT INFORMATION
  Report Type: 
  Country: None (occurrence: None)
  Receive Date: 20120210
  Receipt Date: 20120202
  Transmission Date: 20120608
  Serious: Yes (Hospitalization)
  Sender: FDA-Public Use
  Company Number: PHHY2012JP006620

PATIENT
  Age: 73 Year
  Sex: Male

DRUGS (5)
  1. URALYT [Concomitant]
  2. ATELEC [Concomitant]
  3. THIOLA [Concomitant]
     Dosage: 2000 MG, UNK
     Route: 048
  4. AVAPRO [Concomitant]
  5. TEGRETOL [Suspect]
     Dosage: 4000MG, (5 TABLETS 4 TIMES A DAY)
     Route: 048
     Dates: start: 20110223, end: 20110302

REACTIONS (8)
  - GAIT DISTURBANCE [None]
  - ALTERED STATE OF CONSCIOUSNESS [None]
  - DIZZINESS [None]
  - DRUG DISPENSING ERROR [None]
  - VOMITING [None]
  - DRUG LEVEL INCREASED [None]
  - TOXICITY TO VARIOUS AGENTS [None]
  - COGNITIVE DISORDER [None]
